FAERS Safety Report 26054577 (Version 3)
Quarter: 2025Q4

REPORT INFORMATION
  Report Type: Report from Study
  Country: US (occurrence: US)
  Receive Date: 20251117
  Receipt Date: 20251205
  Transmission Date: 20260117
  Serious: Yes (Hospitalization)
  Sender: GUERBET
  Company Number: US-GUERBET / LLC-US-20250187

PATIENT
  Age: 65 Year
  Sex: Female
  Weight: 62.1 kg

DRUGS (2)
  1. LIPIODOL [Suspect]
     Active Substance: ETHIODIZED OIL
     Indication: Therapeutic embolisation
     Dosage: LIPIODOL/MITOMYCIN EMULSION GIVEN WAS 1 ML (THE CONCENTRATION IS 5 MG/M2 MITOMYCIN C POWDER DISSOLVE
     Route: 013
     Dates: start: 20251020, end: 20251020
  2. MITOMYCIN [Concomitant]
     Active Substance: MITOMYCIN
     Indication: Therapeutic embolisation
     Dosage: LIPIODOL/MITOMYCIN EMULSION GIVEN WAS 1 ML (THE CONCENTRATION IS 5 MG/M2 MITOMYCIN C POWDER DISSOLVE
     Route: 013
     Dates: start: 20251020, end: 20251020

REACTIONS (4)
  - Off label use [Not Recovered/Not Resolved]
  - Dyspnoea [Not Recovered/Not Resolved]
  - Pleural effusion [Not Recovered/Not Resolved]
  - Anaemia [Not Recovered/Not Resolved]

NARRATIVE: CASE EVENT DATE: 20251020
